FAERS Safety Report 24975163 (Version 1)
Quarter: 2025Q1

REPORT INFORMATION
  Report Type: Spontaneous
  Country: US (occurrence: US)
  Receive Date: 20250217
  Receipt Date: 20250217
  Transmission Date: 20250409
  Serious: Yes (Life-Threatening, Hospitalization, Other)
  Sender: LUPIN
  Company Number: US-LUPIN PHARMACEUTICALS INC.-2025-00943

PATIENT
  Age: 26 Year
  Sex: Male

DRUGS (6)
  1. CEFDINIR [Suspect]
     Active Substance: CEFDINIR
     Indication: Post streptococcal glomerulonephritis
     Route: 065
  2. AZITHROMYCIN [Suspect]
     Active Substance: AZITHROMYCIN
     Indication: Post streptococcal glomerulonephritis
     Route: 065
  3. AZITHROMYCIN [Suspect]
     Active Substance: AZITHROMYCIN
     Indication: Pharyngitis streptococcal
  4. CIPROFLOXACIN [Concomitant]
     Active Substance: CIPROFLOXACIN
     Indication: Pharyngitis streptococcal
     Route: 065
  5. CIPROFLOXACIN [Concomitant]
     Active Substance: CIPROFLOXACIN
     Indication: Post streptococcal glomerulonephritis
  6. AMOXICILLIN [Concomitant]
     Active Substance: AMOXICILLIN
     Indication: Pharyngitis streptococcal
     Route: 065

REACTIONS (3)
  - Pulmonary renal syndrome [Recovered/Resolved]
  - Treatment noncompliance [Unknown]
  - Off label use [Unknown]
